FAERS Safety Report 13786755 (Version 2)
Quarter: 2017Q4

REPORT INFORMATION
  Report Type: Spontaneous
  Country: US (occurrence: US)
  Receive Date: 20170725
  Receipt Date: 20171010
  Transmission Date: 20180320
  Serious: No
  Sender: FDA-Public Use
  Company Number: US-JNJFOC-20170615232

PATIENT
  Sex: Female

DRUGS (1)
  1. TYLENOL CHILDRENS SUSPENSION [Suspect]
     Active Substance: ACETAMINOPHEN
     Indication: MALAISE
     Route: 065

REACTIONS (3)
  - Suspected product contamination [Unknown]
  - Drug ineffective [Unknown]
  - Poor quality drug administered [Unknown]
